FAERS Safety Report 17627774 (Version 1)
Quarter: 2020Q2

REPORT INFORMATION
  Report Type: Spontaneous
  Country: US (occurrence: US)
  Receive Date: 20200405
  Receipt Date: 20200405
  Transmission Date: 20200713
  Serious: No
  Sender: FDA-Public Use
  Company Number: US-ASTRAZENECA-2020SE37856

PATIENT
  Age: 872 Month
  Sex: Female
  Weight: 77.6 kg

DRUGS (3)
  1. IMFINZI [Suspect]
     Active Substance: DURVALUMAB
     Indication: BRONCHIAL CARCINOMA
     Dosage: IMFINZI 727 MG, CLOSE TO 10 MG/KG, EVERY 2 WEEKS, INTRAVENOUSLY ACCESSED THROUGH A PORT
     Route: 042
     Dates: start: 20190213
  2. DEXAMETHASONE. [Concomitant]
     Active Substance: DEXAMETHASONE
  3. IMFINZI [Suspect]
     Active Substance: DURVALUMAB
     Indication: NON-SMALL CELL LUNG CANCER
     Dosage: IMFINZI 727 MG, CLOSE TO 10 MG/KG, EVERY 2 WEEKS, INTRAVENOUSLY ACCESSED THROUGH A PORT
     Route: 042
     Dates: start: 20190213

REACTIONS (2)
  - Product dose omission [Unknown]
  - Affect lability [Unknown]

NARRATIVE: CASE EVENT DATE: 202001
